FAERS Safety Report 6024144-6 (Version None)
Quarter: 2008Q4

REPORT INFORMATION
  Report Type: 
  Country: None (occurrence: None)
  Receive Date: 20081224
  Receipt Date: 20081219
  Transmission Date: 20090506
  Serious: Yes (Life-Threatening)
  Sender: FDA-Public Use
  Company Number: 2008003320

PATIENT
  Age: 73 Year
  Sex: Male
  Weight: 61.2 kg

DRUGS (9)
  1. ERLOTINIB              (ERLOTINIB) [Suspect]
     Indication: LUNG SQUAMOUS CELL CARCINOMA STAGE UNSPECIFIED
     Dosage: (150 MG,QD), ORAL
     Route: 048
     Dates: start: 20081118, end: 20081129
  2. TAXOTERE [Suspect]
     Dates: start: 20080816, end: 20080826
  3. AMLODIPINE [Concomitant]
  4. CANDESARTAN CILEXETIL [Concomitant]
  5. LOXOPROFEN (LOXOPROFEN) [Concomitant]
  6. MUCOSTA (REBAMI PIDE) [Concomitant]
  7. LENDORMTN (BROTIZOLAM) [Concomitant]
  8. CODEINE PHOSPHATE (CODEINE PHOSPHATE) [Concomitant]
  9. BIO-THREE [Concomitant]

REACTIONS (7)
  - CEREBRAL INFARCTION [None]
  - DEPRESSED LEVEL OF CONSCIOUSNESS [None]
  - DISEASE PROGRESSION [None]
  - DISSEMINATED INTRAVASCULAR COAGULATION [None]
  - INTERSTITIAL LUNG DISEASE [None]
  - MORAXELLA INFECTION [None]
  - PSEUDOMONAS INFECTION [None]
